FAERS Safety Report 23264291 (Version 1)
Quarter: 2023Q4

REPORT INFORMATION
  Report Type: Spontaneous
  Country: DK (occurrence: DK)
  Receive Date: 20231205
  Receipt Date: 20231205
  Transmission Date: 20240110
  Serious: Yes (Death)
  Sender: FDA-Public Use
  Company Number: None

PATIENT
  Age: 67 Year
  Sex: Male

DRUGS (3)
  1. CARBOPLATIN [Suspect]
     Active Substance: CARBOPLATIN
     Indication: Lung cancer metastatic
     Dosage: STRENGTH: 10 MG/ML?FORM: CONCENTRATE FOR SOLUTION FOR INFUSION?ROA: IV
     Route: 042
     Dates: start: 20231012
  2. ALIMTA [Suspect]
     Active Substance: PEMETREXED DISODIUM
     Indication: Lung cancer metastatic
     Dosage: STRENGTH: 500 MG?12OCT2023 (1ST DOSAGE): 900 MG, UNKNOWN DATE (2ND DOSAGE): 675 MG?FORM: POWDER FOR
     Dates: start: 20231012
  3. KEYTRUDA [Suspect]
     Active Substance: PEMBROLIZUMAB
     Indication: Lung cancer metastatic
     Dosage: STRENGTH: 25 MG/ML?12OCT2023 (1ST DOSAGE): 139 MG, UNKNOWN DATE (2ND DOSAGE): CANCELLED?FORM: CONCEN
     Dates: start: 20231012

REACTIONS (2)
  - Hepatitis [Fatal]
  - Acute hepatic failure [Fatal]
